FAERS Safety Report 8456176-2 (Version None)
Quarter: 2012Q2

REPORT INFORMATION
  Report Type: 
  Country: None (occurrence: None)
  Receive Date: 20120621
  Receipt Date: 20120614
  Transmission Date: 20120825
  Serious: Yes (Other)
  Sender: FDA-Public Use
  Company Number: PHEH2012US003838

PATIENT
  Sex: Female
  Weight: 61.678 kg

DRUGS (11)
  1. GILENYA [Suspect]
     Indication: MULTIPLE SCLEROSIS
     Dosage: 0.5 MG, QD
     Route: 048
     Dates: start: 20111031
  2. BACLOFEN [Concomitant]
     Dosage: 1 DF, TID
     Route: 048
  3. LOVAZA [Concomitant]
     Dosage: 1 DF, TID
     Route: 048
  4. AMITRIPTYLINE HCL [Concomitant]
     Dosage: 1 DF, QHS
     Route: 048
  5. GILENYA [Suspect]
     Dosage: 0.5 MG, QD
     Route: 048
     Dates: end: 20120613
  6. VITAMIN D [Concomitant]
     Dosage: 1 DF, EVERY WEEK
     Route: 048
  7. GILENYA [Suspect]
     Dosage: 0.5 MG, BID
     Route: 048
     Dates: start: 20120315, end: 20120315
  8. FOLIC ACID [Concomitant]
     Dosage: 1 DF, DAILY
     Route: 048
  9. IBUPROFEN [Concomitant]
     Dosage: 2 DF, TIDWHEN SHE TAKES AVONEX INJECTION
     Route: 048
  10. NIACIN [Concomitant]
     Dosage: 1 DF, QD
     Route: 048
  11. FAMPRIDINE [Concomitant]
     Dosage: 1 DF, EVERY 12 HOURS
     Route: 048

REACTIONS (5)
  - WHITE BLOOD CELL COUNT DECREASED [None]
  - RENAL IMPAIRMENT [None]
  - NEUTROPHIL COUNT INCREASED [None]
  - ACCIDENTAL OVERDOSE [None]
  - LYMPHOCYTE COUNT DECREASED [None]
